FAERS Safety Report 13523573 (Version 3)
Quarter: 2019Q3

REPORT INFORMATION
  Report Type: Spontaneous
  Country: US (occurrence: US)
  Receive Date: 20170508
  Receipt Date: 20190806
  Transmission Date: 20191004
  Serious: No
  Sender: FDA-Public Use
  Company Number: US-VIFOR (INTERNATIONAL) INC.-VIT-2017-02015

PATIENT
  Sex: Female
  Weight: 68.1 kg

DRUGS (13)
  1. ALLEGRA [Concomitant]
     Active Substance: FEXOFENADINE HYDROCHLORIDE
  2. FLAXSEED [Concomitant]
     Active Substance: FLAX SEED
  3. FEXOFENADINE HCL [Concomitant]
     Active Substance: FEXOFENADINE HYDROCHLORIDE
  4. LANTUS [Concomitant]
     Active Substance: INSULIN GLARGINE
  5. NOVOLOG [Concomitant]
     Active Substance: INSULIN ASPART
  6. VELTASSA [Suspect]
     Active Substance: PATIROMER
     Indication: HYPERKALAEMIA
     Route: 048
     Dates: start: 20160323
  7. OMEGA 3-6-9 [Concomitant]
     Active Substance: FISH OIL
  8. INSULIN [Concomitant]
     Active Substance: INSULIN NOS
  9. ASPIRIN. [Concomitant]
     Active Substance: ASPIRIN
  10. RAMIPRIL. [Concomitant]
     Active Substance: RAMIPRIL
  11. SIMVASTATIN. [Concomitant]
     Active Substance: SIMVASTATIN
  12. VELTASSA [Suspect]
     Active Substance: PATIROMER
     Route: 048
     Dates: start: 2016
  13. FERREX [Concomitant]
     Active Substance: FERRIC POLYSACCHARIDE COMPLEX

REACTIONS (5)
  - Gastric disorder [Unknown]
  - Product dose omission [Unknown]
  - Tooth fracture [Not Recovered/Not Resolved]
  - Malaise [Unknown]
  - Constipation [Not Recovered/Not Resolved]

NARRATIVE: CASE EVENT DATE: 2016
